FAERS Safety Report 7494414-3 (Version None)
Quarter: 2011Q2

REPORT INFORMATION
  Report Type: 
  Country: None (occurrence: None)
  Receive Date: 20110520
  Receipt Date: 20110506
  Transmission Date: 20111010
  Serious: Yes (Congenital Anomaly)
  Sender: FDA-Public Use
  Company Number: IN-WATSON-2011-06416

PATIENT

DRUGS (1)
  1. DIVALPROEX SODIUM [Suspect]
     Indication: DRUG EXPOSURE DURING PREGNANCY
     Dosage: UNK
     Route: 064

REACTIONS (6)
  - NEURAL TUBE DEFECT [None]
  - POLYDACTYLY [None]
  - HYPOSPADIAS [None]
  - CRANIOSYNOSTOSIS [None]
  - ATRIAL SEPTAL DEFECT [None]
  - CLEFT PALATE [None]
